FAERS Safety Report 15499910 (Version 2)
Quarter: 2018Q4

REPORT INFORMATION
  Report Type: Other
  Country: CA (occurrence: CA)
  Receive Date: 20181015
  Receipt Date: 20181210
  Transmission Date: 20190205
  Serious: Yes (Other)
  Sender: FDA-Public Use
  Company Number: CA-CIPHER-2018-CA-001464

PATIENT
  Age: 52 Year
  Sex: Female

DRUGS (6)
  1. QVAR [Concomitant]
     Active Substance: BECLOMETHASONE DIPROPIONATE
     Indication: PRODUCT USED FOR UNKNOWN INDICATION
     Dosage: 375.0 MILLIGRAM 1 EVERY 2 WEEKS
  2. SINGULAIR [Concomitant]
     Active Substance: MONTELUKAST SODIUM
     Indication: PRODUCT USED FOR UNKNOWN INDICATION
     Route: 065
  3. BREO ELLIPTA [Concomitant]
     Active Substance: FLUTICASONE FUROATE\VILANTEROL TRIFENATATE
     Dosage: 1 EVERY 1 DAYS
  4. SYMBICORT [Concomitant]
     Active Substance: BUDESONIDE\FORMOTEROL FUMARATE DIHYDRATE
     Indication: PRODUCT USED FOR UNKNOWN INDICATION
     Route: 065
  5. TRAMADOL HYDROCHLORIDE. [Suspect]
     Active Substance: TRAMADOL HYDROCHLORIDE
     Indication: PRODUCT USED FOR UNKNOWN INDICATION
     Dosage: 50.0 MILLIGRAM
     Route: 065
  6. PREDNISONE. [Concomitant]
     Active Substance: PREDNISONE
     Indication: PRODUCT USED FOR UNKNOWN INDICATION
     Dosage: 20.0 MILLIGRAM
     Route: 065

REACTIONS (78)
  - Eye swelling [None]
  - Flank pain [None]
  - Gait disturbance [None]
  - Lacrimation increased [None]
  - Malaise [None]
  - Ocular discomfort [None]
  - Ophthalmic herpes zoster [None]
  - Asthenia [None]
  - Weight increased [None]
  - Withdrawal syndrome [None]
  - Dyspepsia [None]
  - Nasal disorder [None]
  - Nausea [None]
  - Arthralgia [None]
  - Oedema [None]
  - Red blood cell count increased [None]
  - Sensitivity to weather change [None]
  - Skin plaque [Recovered/Resolved]
  - White blood cell count increased [None]
  - Corneal abrasion [None]
  - Discomfort [None]
  - Dizziness [None]
  - Drug hypersensitivity [None]
  - Eye infection [None]
  - Fatigue [Recovered/Resolved]
  - Acne [None]
  - Musculoskeletal pain [None]
  - Nasopharyngitis [None]
  - Pyrexia [None]
  - Feeling abnormal [None]
  - Injection site pain [None]
  - Metabolic disorder [None]
  - Musculoskeletal stiffness [None]
  - Scab [None]
  - Somnolence [None]
  - Sputum discoloured [None]
  - Asthma [None]
  - Cholelithiasis [None]
  - Headache [None]
  - Headache [Recovered/Resolved]
  - Herpes zoster [None]
  - Neuralgia [None]
  - Otorrhoea [None]
  - Procedural pain [None]
  - Visual impairment [None]
  - Injection site haemorrhage [None]
  - Blood urine present [None]
  - Chills [Recovered/Resolved]
  - Migraine [None]
  - Nasal discomfort [None]
  - Ocular hyperaemia [None]
  - Rhinorrhoea [None]
  - Vomiting [None]
  - Injection site discomfort [None]
  - Chalazion [None]
  - Cough [None]
  - Eye disorder [None]
  - Abdominal pain upper [None]
  - Herpes zoster oticus [None]
  - Lung infection [None]
  - Oropharyngeal pain [Recovered/Resolved]
  - Pain in extremity [None]
  - Post procedural complication [None]
  - Urinary tract infection [None]
  - Varicose vein [None]
  - Labyrinthitis [None]
  - Blood pressure decreased [None]
  - Abdominal pain [None]
  - Eye pain [None]
  - Facial pain [None]
  - Hypoaesthesia [None]
  - Injection site bruising [None]
  - Osteoporosis [None]
  - Pain [None]
  - Periarthritis [None]
  - Productive cough [None]
  - Back pain [None]
  - Blood pressure systolic increased [None]
